FAERS Safety Report 7382420-9 (Version None)
Quarter: 2011Q1

REPORT INFORMATION
  Report Type: 
  Country: None (occurrence: None)
  Receive Date: 20110329
  Receipt Date: 20110224
  Transmission Date: 20110831
  Serious: No
  Sender: FDA-Public Use
  Company Number: US-BAYER-2011-018496

PATIENT
  Sex: Female

DRUGS (4)
  1. ALEVE (CAPLET) [Suspect]
     Indication: MUSCLE STRAIN
  2. ALEVE (CAPLET) [Suspect]
     Indication: MUSCULOSKELETAL PAIN
  3. ALEVE (CAPLET) [Suspect]
     Indication: MYALGIA
     Dosage: 440 MG, BID
     Route: 048
  4. VITAMIN D [Concomitant]

REACTIONS (1)
  - MUSCULOSKELETAL PAIN [None]
